FAERS Safety Report 5412317-2 (Version None)
Quarter: 2007Q3

REPORT INFORMATION
  Report Type: 
  Country: None (occurrence: None)
  Receive Date: 20070713
  Receipt Date: 20070525
  Transmission Date: 20080115
  Serious: No
  Sender: FDA-Public Use
  Company Number: 2007SP001979

PATIENT
  Age: 74 Year
  Sex: Female
  Weight: 63.5036 kg

DRUGS (5)
  1. LUNESTA [Suspect]
     Indication: INSOMNIA
     Dosage: 3 MG;HS;ORAL
     Route: 048
     Dates: start: 20070523
  2. ATIVAN [Concomitant]
  3. SYNTHROID [Concomitant]
  4. ZOLOFT [Concomitant]
  5. DESENSITIZATION [Concomitant]

REACTIONS (4)
  - DIZZINESS [None]
  - INSOMNIA [None]
  - NAUSEA [None]
  - SENSATION OF BLOOD FLOW [None]
